FAERS Safety Report 4644682-8 (Version None)
Quarter: 2005Q2

REPORT INFORMATION
  Report Type: 
  Country: None (occurrence: None)
  Receive Date: 20050425
  Receipt Date: 20050425
  Transmission Date: 20051028
  Serious: No
  Sender: FDA-Public Use
  Company Number: None

PATIENT
  Age: 63 Year
  Sex: Female

DRUGS (1)
  1. NESIRITIDE [Suspect]
     Indication: CARDIAC FAILURE
     Dosage: CONTINUOUS   INTRAVENOU
     Route: 042
     Dates: start: 20050101, end: 20050103

REACTIONS (1)
  - HYPOTENSION [None]
